FAERS Safety Report 13570848 (Version 1)
Quarter: 2017Q2

REPORT INFORMATION
  Report Type: Spontaneous
  Country: US (occurrence: US)
  Receive Date: 20170522
  Receipt Date: 20170522
  Transmission Date: 20170830
  Serious: Yes (Death, Life-Threatening, Disabling)
  Sender: FDA-Public Use
  Company Number: None

PATIENT
  Age: 37 Year
  Sex: Female

DRUGS (1)
  1. CIPRO [Suspect]
     Active Substance: CIPROFLOXACIN HYDROCHLORIDE
     Dosage: INTRAVENOUS (NOT OTHERWISE SPECIFIED)
     Route: 042

REACTIONS (9)
  - Amnesia [None]
  - Loss of consciousness [None]
  - Dyskinesia [None]
  - Cardiac arrest [None]
  - Parosmia [None]
  - Neuralgia [None]
  - Myocardial infarction [None]
  - General physical health deterioration [None]
  - Dysgeusia [None]

NARRATIVE: CASE EVENT DATE: 20071001
